FAERS Safety Report 5696131-9 (Version None)
Quarter: 2008Q2

REPORT INFORMATION
  Report Type: 
  Country: None (occurrence: None)
  Receive Date: 20080407
  Receipt Date: 20080331
  Transmission Date: 20081010
  Serious: Yes (Other)
  Sender: FDA-Public Use
  Company Number: GB-BRISTOL-MYERS SQUIBB COMPANY-14138580

PATIENT
  Age: 60 Year
  Sex: Female
  Weight: 107 kg

DRUGS (1)
  1. METFORMIN HCL [Suspect]
     Indication: OBESITY
     Route: 048
     Dates: start: 20071121, end: 20080301

REACTIONS (1)
  - COLONIC POLYP [None]
